FAERS Safety Report 5450015-X (Version None)
Quarter: 2007Q3

REPORT INFORMATION
  Report Type: 
  Country: None (occurrence: None)
  Receive Date: 20070912
  Receipt Date: 20070905
  Transmission Date: 20080115
  Serious: Yes (Other)
  Sender: FDA-Public Use
  Company Number: US-JNJFOC-20070901416

PATIENT
  Sex: Female
  Weight: 86.18 kg

DRUGS (3)
  1. FENTANYL TRANSDERMAL SYSTEM [Suspect]
     Indication: PAIN
     Route: 062
  2. FENTANYL TRANSDERMAL SYSTEM [Suspect]
     Indication: PAIN
     Route: 062
  3. PEROCET [Concomitant]
     Indication: PAIN
     Route: 048

REACTIONS (4)
  - APPLICATION SITE IRRITATION [None]
  - FIBROMYALGIA [None]
  - INADEQUATE ANALGESIA [None]
  - WRONG TECHNIQUE IN DRUG USAGE PROCESS [None]
